FAERS Safety Report 7894333-4 (Version None)
Quarter: 2011Q4

REPORT INFORMATION
  Report Type: 
  Country: None (occurrence: None)
  Receive Date: 20111104
  Receipt Date: 20111031
  Transmission Date: 20120403
  Serious: Yes (Hospitalization)
  Sender: FDA-Public Use
  Company Number: FR-MERCK-1102FRA00047

PATIENT
  Age: 55 Year
  Sex: Male

DRUGS (4)
  1. ISENTRESS [Suspect]
     Indication: HIV INFECTION
     Route: 048
     Dates: start: 20101217, end: 20110207
  2. EMTRICITABINE AND TENOFOVIR DISOPROXIL FUMARATE [Concomitant]
     Route: 048
  3. KETOPROFEN [Concomitant]
     Route: 048
  4. THIOCOLCHICOSIDE [Concomitant]
     Route: 048

REACTIONS (2)
  - NIGHTMARE [None]
  - PSYCHIATRIC DECOMPENSATION [None]
